FAERS Safety Report 6371193-4 (Version None)
Quarter: 2009Q3

REPORT INFORMATION
  Report Type: 
  Country: None (occurrence: None)
  Receive Date: 20090923
  Receipt Date: 20070801
  Transmission Date: 20100115
  Serious: Yes (Other)
  Sender: FDA-Public Use
  Company Number: US-ASTRAZENECA-2007UW05564

PATIENT
  Age: 16091 Day
  Sex: Male
  Weight: 71.2 kg

DRUGS (20)
  1. SEROQUEL [Suspect]
     Indication: SCHIZOPHRENIA
     Dosage: 50-200 MG TWO TIMES A DAY
     Route: 048
     Dates: start: 19970901, end: 20060501
  2. SEROQUEL [Suspect]
     Dosage: 50-200 MG
     Route: 048
     Dates: start: 20010611
  3. VALIUM [Concomitant]
     Dosage: 4-40 MG
     Route: 048
  4. RESTORIL [Concomitant]
     Indication: SLEEP DISORDER
     Route: 048
  5. MELATONIN [Concomitant]
  6. DEPAKENE [Concomitant]
     Dosage: 1500-3000 MG
  7. BACTRIM DS [Concomitant]
     Indication: INFECTION
  8. OXANDROLONE [Concomitant]
     Dosage: 8-16 MG
  9. HYDROCHLOROTHIAZIDE [Concomitant]
  10. DARVOCET [Concomitant]
  11. PAXIL CR [Concomitant]
     Route: 048
  12. PROMETHAZINE [Concomitant]
  13. ALBUTEROL [Concomitant]
     Dosage: Q 4-6 H
  14. HALCION [Concomitant]
     Route: 048
  15. LANOXIN [Concomitant]
     Route: 048
  16. ZOLOFT [Concomitant]
     Dates: start: 19980615
  17. DIAMOX [Concomitant]
     Indication: METABOLIC ALKALOSIS
  18. ZYPREXA [Concomitant]
  19. PROZAC [Concomitant]
     Dosage: 20-40 MG
     Route: 048
  20. TOPROL-XL [Concomitant]

REACTIONS (2)
  - DIABETIC KETOACIDOSIS [None]
  - TYPE 2 DIABETES MELLITUS [None]
